FAERS Safety Report 5143727-9 (Version None)
Quarter: 2006Q4

REPORT INFORMATION
  Report Type: 
  Country: None (occurrence: None)
  Receive Date: 20061104
  Receipt Date: 20060919
  Transmission Date: 20070319
  Serious: Yes (Other)
  Sender: FDA-Public Use
  Company Number: DK-ABBOTT-06P-044-0347007-00

PATIENT
  Sex: Female
  Weight: 100 kg

DRUGS (2)
  1. REDUCTIL 10MG [Suspect]
     Indication: OBESITY
     Route: 048
     Dates: start: 20060903, end: 20060912
  2. REDUCTIL 10MG [Suspect]
     Route: 048

REACTIONS (1)
  - ABORTION INDUCED [None]
